FAERS Safety Report 20416983 (Version 6)
Quarter: 2025Q3

REPORT INFORMATION
  Report Type: Spontaneous
  Country: US (occurrence: US)
  Receive Date: 20220202
  Receipt Date: 20250814
  Transmission Date: 20251021
  Serious: No
  Sender: BRISTOL-MYERS SQUIBB COMPANY
  Company Number: US-BRISTOL-MYERS SQUIBB COMPANY-BMS-2022-010372

PATIENT
  Age: 81 Year
  Sex: Female
  Weight: 57.61 kg

DRUGS (10)
  1. ELIQUIS [Suspect]
     Active Substance: APIXABAN
     Indication: Atrial fibrillation
     Route: 048
     Dates: start: 2020
  2. ELIQUIS [Suspect]
     Active Substance: APIXABAN
     Dosage: PATIENT SPLIT 5 MG TABLET AND TOOK HALF IN THE MORNING AND HALF A 5 MG TABLET IN THE EVENING
     Route: 048
  3. ELIQUIS [Suspect]
     Active Substance: APIXABAN
     Route: 048
  4. ELIQUIS [Suspect]
     Active Substance: APIXABAN
     Route: 048
  5. ATENOLOL [Concomitant]
     Active Substance: ATENOLOL
     Indication: Product used for unknown indication
  6. TUMS [Concomitant]
     Active Substance: CALCIUM CARBONATE
     Indication: Product used for unknown indication
  7. METOPROLOL [Concomitant]
     Active Substance: METOPROLOL
     Indication: Product used for unknown indication
  8. METOPROLOL [Concomitant]
     Active Substance: METOPROLOL
  9. BRILINTA [Concomitant]
     Active Substance: TICAGRELOR
     Indication: Thrombosis prophylaxis
  10. BRILINTA [Concomitant]
     Active Substance: TICAGRELOR
     Indication: Product used for unknown indication

REACTIONS (8)
  - Reaction to colouring [Unknown]
  - Wrong technique in product usage process [Unknown]
  - Chromaturia [Not Recovered/Not Resolved]
  - Faeces discoloured [Not Recovered/Not Resolved]
  - Weight decreased [Unknown]
  - Visual impairment [Unknown]
  - Product distribution issue [Unknown]
  - Therapy interrupted [Unknown]

NARRATIVE: CASE EVENT DATE: 20220101
